FAERS Safety Report 8457749-3 (Version None)
Quarter: 2012Q2

REPORT INFORMATION
  Report Type: 
  Country: None (occurrence: None)
  Receive Date: 20120618
  Receipt Date: 20120618
  Transmission Date: 20120825
  Serious: Yes (Life-Threatening)
  Sender: FDA-Public Use
  Company Number: None

PATIENT
  Age: 60 Year
  Sex: Male
  Weight: 156.491 kg

DRUGS (1)
  1. AMOXICILLIN [Suspect]
     Indication: PREOPERATIVE CARE
     Dosage: ONE TABLET EVERY 6 HOURS PO
     Route: 048
     Dates: start: 20120612, end: 20120613

REACTIONS (8)
  - VOMITING [None]
  - DIZZINESS [None]
  - HYPERACUSIS [None]
  - MALAISE [None]
  - ASTHENIA [None]
  - SYNCOPE [None]
  - HEADACHE [None]
  - DIARRHOEA [None]
